FAERS Safety Report 19168995 (Version 2)
Quarter: 2021Q2

REPORT INFORMATION
  Report Type: Report from Study
  Country: US (occurrence: US)
  Receive Date: 20210422
  Receipt Date: 20210504
  Transmission Date: 20210717
  Serious: Yes (Hospitalization, Other)
  Sender: FDA-Public Use
  Company Number: US-G1-000295

PATIENT
  Age: 69 Year
  Sex: Male
  Weight: 91.44 kg

DRUGS (6)
  1. OXALIPLATIN. [Suspect]
     Active Substance: OXALIPLATIN
     Indication: COLON CANCER METASTATIC
     Dosage: TIME INTERVAL: CYCLICAL; TOTAL DOSE 175 MG
     Route: 041
     Dates: start: 20210401
  2. IRINOTECAN [Suspect]
     Active Substance: IRINOTECAN
     Indication: COLON CANCER METASTATIC
     Dosage: TIME INTERVAL: CYCLICAL; TOTAL DOSE 340 MG
     Route: 041
     Dates: start: 20210401
  3. LEUCOVORIN. [Suspect]
     Active Substance: LEUCOVORIN
     Indication: COLON CANCER METASTATIC
     Dosage: TIME INTERVAL: CYCLICAL; TOTAL DOSE 840 MG
     Route: 041
     Dates: start: 20210401
  4. TRILACICLIB (G1T28 207) [Suspect]
     Active Substance: TRILACICLIB
     Indication: MYELOSUPPRESSION
     Dosage: TIME INTERVAL: CYCLICAL; DAY 1 AND 2 OF EACH CYCLE
     Route: 041
     Dates: start: 20210401
  5. FLUOROURACIL. [Suspect]
     Active Substance: FLUOROURACIL
     Indication: COLON CANCER METASTATIC
     Dosage: TIME INTERVAL: CYCLICAL; CONTINUOUS OVER 48 HOURS; TOTAL DOSE 5000 MG
     Route: 041
  6. BEVACIZUMAB. [Suspect]
     Active Substance: BEVACIZUMAB
     Indication: COLON CANCER METASTATIC
     Dosage: TIME INTERVAL: CYCLICAL; 460 MG TOTAL
     Route: 041
     Dates: start: 20210401

REACTIONS (1)
  - Chest pain [Recovered/Resolved]

NARRATIVE: CASE EVENT DATE: 20210403
